FAERS Safety Report 24005553 (Version 1)
Quarter: 2024Q2

REPORT INFORMATION
  Report Type: Spontaneous
  Country: US (occurrence: US)
  Receive Date: 20240624
  Receipt Date: 20240624
  Transmission Date: 20240715
  Serious: No
  Sender: FDA-Public Use
  Company Number: US-BMS-IMIDS-REMS-SI-11355203

PATIENT

DRUGS (1)
  1. LENALIDOMIDE [Suspect]
     Active Substance: LENALIDOMIDE
     Indication: Product used for unknown indication
     Dosage: 10 MG 21 DAYS ON AND 10 DAYS OFF
     Route: 065
     Dates: start: 20221114

REACTIONS (2)
  - Product substitution issue [Unknown]
  - Diarrhoea [Unknown]
